FAERS Safety Report 25708946 (Version 1)
Quarter: 2025Q3

REPORT INFORMATION
  Report Type: Spontaneous
  Country: RU (occurrence: RU)
  Receive Date: 20250821
  Receipt Date: 20250821
  Transmission Date: 20251021
  Serious: Yes (Other)
  Sender: ENDO
  Company Number: RU-ENDO USA, INC.-2025-001806

PATIENT
  Age: 46 Year
  Sex: Male

DRUGS (1)
  1. AVEED [Suspect]
     Active Substance: TESTOSTERONE UNDECANOATE
     Indication: Product used for unknown indication
     Route: 030
     Dates: start: 20250617, end: 2025

REACTIONS (3)
  - Loss of consciousness [Recovering/Resolving]
  - Throat irritation [Recovering/Resolving]
  - Dyspnoea [Recovering/Resolving]

NARRATIVE: CASE EVENT DATE: 20250619
